FAERS Safety Report 11977042 (Version 1)
Quarter: 2016Q1

REPORT INFORMATION
  Report Type: Spontaneous
  Country: US (occurrence: US)
  Receive Date: 20160129
  Receipt Date: 20160129
  Transmission Date: 20160526
  Serious: No
  Sender: FDA-Public Use
  Company Number: US-PERRIGO-15US005435

PATIENT
  Sex: Male

DRUGS (1)
  1. IBUPROFEN 200MG-DIPHENHYDRAMINE CITRATE 38 MG 8K7 [Suspect]
     Active Substance: DIPHENHYDRAMINE HYDROCHLORIDE\IBUPROFEN
     Indication: WRONG DRUG ADMINISTERED
     Dosage: 7 TABLETS, SINGLE
     Route: 048
     Dates: start: 20150521, end: 20150521

REACTIONS (4)
  - Balance disorder [Unknown]
  - Fatigue [Unknown]
  - Accidental overdose [Recovered/Resolved]
  - Product name confusion [Recovered/Resolved]

NARRATIVE: CASE EVENT DATE: 20150521
